FAERS Safety Report 22259877 (Version 1)
Quarter: 2023Q2

REPORT INFORMATION
  Report Type: Report from Study
  Country: CO (occurrence: CO)
  Receive Date: 20230427
  Receipt Date: 20230427
  Transmission Date: 20230721
  Serious: Yes (Hospitalization, Other)
  Sender: FDA-Public Use
  Company Number: CO-ABBVIE-4739441

PATIENT
  Sex: Female
  Weight: 55 kg

DRUGS (2)
  1. HUMIRA [Suspect]
     Active Substance: ADALIMUMAB
     Indication: Rheumatoid arthritis
     Route: 058
     Dates: start: 20200115, end: 20230306
  2. TRAMADOL [Suspect]
     Active Substance: TRAMADOL
     Indication: Pain
     Dosage: FORM STRENGTH: 100MG
     Route: 048
     Dates: start: 20230327, end: 20230402

REACTIONS (10)
  - Fall [Not Recovered/Not Resolved]
  - Blood pressure decreased [Recovered/Resolved]
  - Joint injury [Not Recovered/Not Resolved]
  - Malaise [Recovered/Resolved]
  - Arthralgia [Not Recovered/Not Resolved]
  - Dysstasia [Not Recovered/Not Resolved]
  - Arthralgia [Not Recovered/Not Resolved]
  - Ilium fracture [Not Recovered/Not Resolved]
  - Chills [Not Recovered/Not Resolved]
  - Discomfort [Unknown]

NARRATIVE: CASE EVENT DATE: 20230101
